FAERS Safety Report 14285685 (Version 1)
Quarter: 2017Q4

REPORT INFORMATION
  Report Type: Spontaneous
  Country: FR (occurrence: FR)
  Receive Date: 20171214
  Receipt Date: 20171214
  Transmission Date: 20180321
  Serious: Yes (Other)
  Sender: FDA-Public Use
  Company Number: FR-MERCK KGAA-2037176

PATIENT
  Age: 56 Year
  Sex: Female

DRUGS (11)
  1. NOVOTHYROX [Suspect]
     Active Substance: LEVOTHYROXINE SODIUM
     Indication: PRODUCT USED FOR UNKNOWN INDICATION
     Dates: start: 201705
  2. MOPRAL [Concomitant]
     Active Substance: OMEPRAZOLE SODIUM
     Dates: start: 20170607
  3. LAMALINE [Concomitant]
     Active Substance: ACETAMINOPHEN\CAFFEINE\OPIUM
     Dates: start: 20170607
  4. IZALGI [Concomitant]
     Active Substance: ACETAMINOPHEN\OPIUM
     Dates: start: 20170607
  5. LIPANTHYL [Concomitant]
     Active Substance: FENOFIBRATE
     Dates: start: 20170607
  6. PARACETAMOL [Concomitant]
     Active Substance: ACETAMINOPHEN
     Dates: start: 20170607
  7. LERCAN [Concomitant]
     Active Substance: LERCANIDIPINE
     Dates: start: 20170607
  8. IZALGI [Concomitant]
     Active Substance: ACETAMINOPHEN\OPIUM
     Dates: start: 20170607
  9. CARTEX [Concomitant]
  10. TAHOR [Concomitant]
     Active Substance: ATORVASTATIN CALCIUM
     Dates: start: 20170607
  11. EDUCTYL [Concomitant]
     Active Substance: POTASSIUM BITARTRATE\SODIUM BICARBONATE
     Dates: start: 20170607

REACTIONS (15)
  - Abdominal pain upper [None]
  - Myalgia [None]
  - Decreased appetite [None]
  - Weight increased [None]
  - Bed rest [None]
  - Blood pressure increased [None]
  - Vision blurred [None]
  - Gastrointestinal motility disorder [None]
  - Oedema peripheral [None]
  - Headache [None]
  - Alopecia [None]
  - Palpitations [None]
  - Asthenia [None]
  - Feeling drunk [None]
  - Vertigo [None]

NARRATIVE: CASE EVENT DATE: 201707
